FAERS Safety Report 9305701 (Version 1)
Quarter: 2013Q2

REPORT INFORMATION
  Report Type: Spontaneous
  Country: ES (occurrence: None)
  Receive Date: 20130430
  Receipt Date: 20130430
  Transmission Date: 20140414
  Serious: Yes (Hospitalization)
  Sender: FDA-Public Use
  Company Number: 2013035087

PATIENT
  Age: 37 Year
  Sex: Female

DRUGS (2)
  1. PRIVIGEN (IMMUNE GLOBULIN INTRAVENOUS (HUMAN) 10% LIQUID) [Suspect]
     Indication: APLASIA
     Dosage: 30 G QD INTRAVENOUS
     Route: 042
     Dates: start: 20130221, end: 20130225
  2. CYCLOSPORINE (CICLOSPORIN) [Concomitant]

REACTIONS (3)
  - Coombs direct test positive [None]
  - Anti-erythrocyte antibody positive [None]
  - Off label use [None]
